FAERS Safety Report 13526708 (Version 2)
Quarter: 2017Q2

REPORT INFORMATION
  Report Type: Report from Study
  Country: CN (occurrence: CN)
  Receive Date: 20170509
  Receipt Date: 20170512
  Transmission Date: 20170830
  Serious: Yes (Other)
  Sender: FDA-Public Use
  Company Number: PHHY2017CN066880

PATIENT
  Sex: Male
  Weight: 3.65 kg

DRUGS (1)
  1. SEBIVO [Suspect]
     Active Substance: TELBIVUDINE
     Indication: FOETAL EXPOSURE DURING PREGNANCY
     Dosage: (MATERNAL DOSE: 600 MG/DAY)
     Route: 064

REACTIONS (2)
  - Foetal exposure during pregnancy [Unknown]
  - Accessory auricle [Unknown]
